FAERS Safety Report 6606503-3 (Version None)
Quarter: 2010Q1

REPORT INFORMATION
  Report Type: 
  Country: None (occurrence: None)
  Receive Date: 20100226
  Receipt Date: 20100220
  Transmission Date: 20100710
  Serious: Yes (Hospitalization)
  Sender: FDA-Public Use
  Company Number: PHHO2009CZ10565

PATIENT
  Sex: Male
  Weight: 100 kg

DRUGS (5)
  1. CERTICAN [Suspect]
     Indication: PROPHYLAXIS AGAINST TRANSPLANT REJECTION
     Dosage: 3.375 MG, BID
     Dates: start: 20090818, end: 20090824
  2. AEB071 AEB+GELCAP [Suspect]
     Indication: RENAL TRANSPLANT
     Dosage: 600 MG
     Route: 048
     Dates: start: 20090806, end: 20090824
  3. AEB071 AEB+GELCAP [Suspect]
     Dosage: NO TREATMENT
     Dates: start: 20090825, end: 20090831
  4. AEB071 AEB+GELCAP [Suspect]
     Dosage: 600 MG
     Route: 048
     Dates: start: 20090901, end: 20090907
  5. PREDNISON GALEPHARM [Concomitant]
     Indication: RENAL TRANSPLANT
     Dosage: 250 MG, QD
     Dates: start: 20090821, end: 20090824

REACTIONS (10)
  - ABDOMINAL PAIN [None]
  - DYSPNOEA [None]
  - OLIGURIA [None]
  - PULMONARY OEDEMA [None]
  - RESPIRATORY FAILURE [None]
  - TACHYCARDIA [None]
  - TRANSPLANT REJECTION [None]
  - URINARY FISTULA [None]
  - URINARY INCONTINENCE [None]
  - UROSEPSIS [None]
